FAERS Safety Report 18443234 (Version 1)
Quarter: 2020Q4

REPORT INFORMATION
  Report Type: Spontaneous
  Country: US (occurrence: US)
  Receive Date: 20201030
  Receipt Date: 20201030
  Transmission Date: 20210114
  Serious: No
  Sender: FDA-Public Use
  Company Number: US-LUPIN PHARMACEUTICALS INC.-2020-01137

PATIENT
  Sex: Female

DRUGS (2)
  1. CEFDINIR FOR ORAL SUSPENSION USP 250 MG/5 ML [Suspect]
     Active Substance: CEFDINIR
     Indication: FUNGAL INFECTION
     Dosage: 1 TABLESPOON TWICE DAILY FOR 7 DAYS
     Route: 048
     Dates: start: 20200222
  2. NYSTATIN. [Concomitant]
     Active Substance: NYSTATIN
     Indication: FUNGAL INFECTION
     Dosage: UNK
     Route: 065

REACTIONS (5)
  - Oral disorder [Unknown]
  - Tongue dry [Unknown]
  - Product quality issue [Unknown]
  - Product odour abnormal [Unknown]
  - Product taste abnormal [Unknown]
